FAERS Safety Report 9299995 (Version 1)
Quarter: 2012Q4

REPORT INFORMATION
  Report Type: Spontaneous
  Country: JP (occurrence: None)
  Receive Date: 20121105
  Receipt Date: 20121105
  Transmission Date: 20130627
  Serious: Yes (Death)
  Sender: FDA-Public Use
  Company Number: MSI 1999 0011

PATIENT
  Age: 57 Year
  Sex: Male

DRUGS (2)
  1. LIPIODOL ULTRA FLUIDE (ETHIODIZED OIL) [Suspect]
     Indication: ARTERIAL EMBOLISM NOS
     Route: 013
     Dates: start: 19970129, end: 19970129
  2. FARMORUBICIN [Suspect]
     Route: 013
     Dates: start: 19970129, end: 19970129

REACTIONS (4)
  - Liver abscess [None]
  - Abscess rupture [None]
  - Peritonitis [None]
  - Off label use [None]
